FAERS Safety Report 21831812 (Version 3)
Quarter: 2023Q4

REPORT INFORMATION
  Report Type: Spontaneous
  Country: FR (occurrence: FR)
  Receive Date: 20230106
  Receipt Date: 20231208
  Transmission Date: 20240110
  Serious: Yes (Death)
  Sender: FDA-Public Use
  Company Number: None

PATIENT
  Age: 27 Year
  Sex: Female

DRUGS (6)
  1. MIRTAZAPINE [Suspect]
     Active Substance: MIRTAZAPINE
     Dosage: NR
     Route: 065
     Dates: end: 202207
  2. AMOXAPINE [Suspect]
     Active Substance: AMOXAPINE
     Dosage: NR
     Route: 065
     Dates: end: 202207
  3. LOXAPINE SUCCINATE [Suspect]
     Active Substance: LOXAPINE SUCCINATE
     Dosage: NR
     Route: 065
     Dates: end: 202207
  4. SERTRALINE HYDROCHLORIDE [Suspect]
     Active Substance: SERTRALINE HYDROCHLORIDE
     Dosage: NR
     Route: 065
     Dates: end: 202207
  5. OXAZEPAM [Suspect]
     Active Substance: OXAZEPAM
     Dosage: NR
     Route: 065
     Dates: end: 202207
  6. NORDAZEPAM [Suspect]
     Active Substance: NORDAZEPAM
     Dosage: NR
     Route: 065
     Dates: end: 202207

REACTIONS (2)
  - Poisoning [Fatal]
  - Asphyxia [Fatal]

NARRATIVE: CASE EVENT DATE: 20220701
